FAERS Safety Report 4822703-7 (Version None)
Quarter: 2005Q4

REPORT INFORMATION
  Report Type: 
  Country: None (occurrence: None)
  Receive Date: 20051104
  Receipt Date: 20051024
  Transmission Date: 20060501
  Serious: Yes (Disabling)
  Sender: FDA-Public Use
  Company Number: 2005EU002201

PATIENT
  Age: 12 Year
  Sex: Male
  Weight: 34 kg

DRUGS (7)
  1. TACROLIMUS             CAPSULES (TACROLIMUS) [Suspect]
     Indication: RENAL TRANSPLANT
     Dosage: 6.00 MG UID/QD ORAL
     Route: 048
     Dates: start: 20050805, end: 20050816
  2. PREDNISONE [Suspect]
     Indication: RENAL TRANSPLANT
     Dosage: 10.00 MG UID/QD ORAL
     Route: 048
     Dates: start: 20050427
  3. MYFORTIC [Concomitant]
  4. BACTRIM [Concomitant]
  5. RANITIDINE HYDROCHLORIDE [Concomitant]
  6. FUNGIZONE [Concomitant]
  7. EUCALCIC (CALCIUM CARBONATE) [Concomitant]

REACTIONS (3)
  - BONE PAIN [None]
  - PAIN IN EXTREMITY [None]
  - TENDONITIS [None]
